FAERS Safety Report 8658393 (Version 5)
Quarter: 2014Q2

REPORT INFORMATION
  Report Type: Report from Study
  Country: BR (occurrence: BR)
  Receive Date: 20120710
  Receipt Date: 20140421
  Transmission Date: 20141212
  Serious: Yes (Hospitalization, Other)
  Sender: FDA-Public Use
  Company Number: BR-ROCHE-1084998

PATIENT
  Sex: Female
  Weight: 72 kg

DRUGS (8)
  1. MABTHERA [Suspect]
     Indication: RHEUMATOID ARTHRITIS
     Dosage: DATE OF LAST INFUSION : APR/2013.
     Route: 065
     Dates: start: 20110408
  2. GALVUS [Concomitant]
     Route: 065
  3. CRESTOR [Concomitant]
     Route: 065
  4. DIOVAN HCT [Concomitant]
     Indication: DIABETES MELLITUS
     Route: 065
  5. PURAN T4 [Concomitant]
     Indication: THYROID DISORDER
  6. NEXIUM [Concomitant]
     Indication: GASTRIC DISORDER
     Route: 065
  7. PRESSAT [Concomitant]
     Route: 065
  8. GLIFAGE XR [Concomitant]
     Route: 065

REACTIONS (11)
  - Heart rate abnormal [Recovered/Resolved]
  - Mobility decreased [Recovering/Resolving]
  - Syncope [Recovered/Resolved]
  - Chest pain [Recovering/Resolving]
  - Fatigue [Not Recovered/Not Resolved]
  - Dyspnoea [Not Recovered/Not Resolved]
  - Asthenia [Not Recovered/Not Resolved]
  - Dizziness [Unknown]
  - Nausea [Unknown]
  - Arthralgia [Not Recovered/Not Resolved]
  - Drug dose omission [Unknown]
